FAERS Safety Report 19644817 (Version 2)
Quarter: 2021Q4

REPORT INFORMATION
  Report Type: Spontaneous
  Country: JP (occurrence: JP)
  Receive Date: 20210802
  Receipt Date: 20211223
  Transmission Date: 20220303
  Serious: Yes (Hospitalization, Other)
  Sender: FDA-Public Use
  Company Number: JP-SAKK-2021SA248081AA

PATIENT
  Age: 28 Year
  Sex: Male
  Weight: 74 kg

DRUGS (1)
  1. DUPIXENT [Suspect]
     Active Substance: DUPILUMAB
     Indication: Dermatitis atopic
     Dosage: UNK
     Route: 058
     Dates: start: 20181215, end: 20210606

REACTIONS (5)
  - Haemophagocytic lymphohistiocytosis [Recovering/Resolving]
  - Pyrexia [Recovering/Resolving]
  - Lymphadenopathy [Recovering/Resolving]
  - Hepatosplenomegaly [Recovering/Resolving]
  - Liver disorder [Recovering/Resolving]

NARRATIVE: CASE EVENT DATE: 20210715
